FAERS Safety Report 7927391-9 (Version None)
Quarter: 2011Q4

REPORT INFORMATION
  Report Type: 
  Country: None (occurrence: None)
  Receive Date: 20111118
  Receipt Date: 20111108
  Transmission Date: 20120403
  Serious: Yes (Hospitalization, Other)
  Sender: FDA-Public Use
  Company Number: US-BAYER-2011-001050

PATIENT
  Age: 44 Year
  Sex: Female
  Weight: 65.76 kg

DRUGS (7)
  1. YASMIN [Suspect]
  2. DROSPIRENONE AND ETHINYL ESTRADIOL [Suspect]
     Indication: CONTRACEPTION
     Dosage: UNK
     Dates: start: 20090122, end: 20091102
  3. YASMIN [Suspect]
     Indication: PREMENSTRUAL SYNDROME
     Dosage: UNK
     Dates: start: 20091221, end: 20100601
  4. YASMIN [Suspect]
     Indication: CONTRACEPTION
     Dosage: UNK
     Dates: start: 20020717, end: 20081221
  5. DROSPIRENONE AND ETHINYL ESTRADIOL [Suspect]
     Indication: PREMENSTRUAL SYNDROME
  6. SYNTHROID [Concomitant]
     Dosage: UNK
     Dates: start: 20080101, end: 20080301
  7. ALBUTEROL [Concomitant]
     Dosage: UNK
     Dates: start: 20080101, end: 20080201

REACTIONS (2)
  - CHOLECYSTITIS [None]
  - CHOLELITHIASIS [None]
